FAERS Safety Report 19187550 (Version 1)
Quarter: 2021Q2

REPORT INFORMATION
  Report Type: Report from Study
  Country: US (occurrence: US)
  Receive Date: 20210427
  Receipt Date: 20210427
  Transmission Date: 20210717
  Serious: Yes (Death, Hospitalization, Other)
  Sender: FDA-Public Use
  Company Number: US-BRISTOL-MYERS SQUIBB COMPANY-BMS-2021-000713

PATIENT
  Age: 69 Year
  Sex: Male
  Weight: 61.9 kg

DRUGS (3)
  1. IPILIMUMAB [Suspect]
     Active Substance: IPILIMUMAB
     Indication: TRANSITIONAL CELL CARCINOMA
     Dosage: EVERY 6 WEEKS X 2
     Route: 042
     Dates: start: 20201029, end: 20201210
  2. MS CONTIN [Concomitant]
     Active Substance: MORPHINE SULFATE
     Indication: PRODUCT USED FOR UNKNOWN INDICATION
     Dosage: 30 MILLIGRAM, Q12H
     Route: 048
  3. DS3201 [Suspect]
     Active Substance: INVESTIGATIONAL PRODUCT
     Indication: TRANSITIONAL CELL CARCINOMA
     Dosage: UNK, QD
     Route: 048
     Dates: start: 20201029, end: 20201117

REACTIONS (4)
  - Urinary tract infection [Unknown]
  - Septic shock [Unknown]
  - Pneumonia aspiration [Unknown]
  - Death [Fatal]

NARRATIVE: CASE EVENT DATE: 202012
